FAERS Safety Report 16709987 (Version 3)
Quarter: 2019Q3

REPORT INFORMATION
  Report Type: Spontaneous
  Country: US (occurrence: US)
  Receive Date: 20190816
  Receipt Date: 20190906
  Transmission Date: 20191004
  Serious: Yes (Hospitalization)
  Sender: FDA-Public Use
  Company Number: US-PFIZER INC-2019348183

PATIENT
  Age: 74 Year
  Sex: Male

DRUGS (1)
  1. QUELICIN [Suspect]
     Active Substance: SUCCINYLCHOLINE CHLORIDE
     Indication: NEUROMUSCULAR BLOCKADE
     Dosage: 1 MG/KG, UNK
     Route: 042
     Dates: start: 20190731, end: 20190731

REACTIONS (1)
  - Drug ineffective [Recovered/Resolved]
